FAERS Safety Report 4651123-3 (Version None)
Quarter: 2005Q2

REPORT INFORMATION
  Report Type: 
  Country: None (occurrence: None)
  Receive Date: 20050503
  Receipt Date: 20050422
  Transmission Date: 20051028
  Serious: Yes (Death)
  Sender: FDA-Public Use
  Company Number: US-JNJFOC-20050402691

PATIENT
  Sex: Male
  Weight: 11.34 kg

DRUGS (1)
  1. CONCENTRATED INFANTS' TYLENOL COLD PLUS COUGH [Suspect]
     Dosage: 2 DROPPERFULS, ONCE, PO
     Route: 049

REACTIONS (3)
  - CARDIAC ARREST [None]
  - CONVULSION [None]
  - URTICARIA [None]
